FAERS Safety Report 19682297 (Version 4)
Quarter: 2022Q2

REPORT INFORMATION
  Report Type: Report from Study
  Country: US (occurrence: US)
  Receive Date: 20210810
  Receipt Date: 20220418
  Transmission Date: 20220721
  Serious: Yes (Other)
  Sender: FDA-Public Use
  Company Number: US-SHIRE-US201928994

PATIENT
  Sex: Female
  Weight: 104 kg

DRUGS (37)
  1. HUMAN IMMUNOGLOBULIN G [Suspect]
     Active Substance: HUMAN IMMUNOGLOBULIN G
     Indication: Primary immunodeficiency syndrome
     Dosage: 10 GRAM, 1/WEEK
     Route: 058
     Dates: start: 20170810
  2. HUMAN IMMUNOGLOBULIN G [Suspect]
     Active Substance: HUMAN IMMUNOGLOBULIN G
     Indication: Immunodeficiency common variable
  3. ACETAMINOPHEN [Concomitant]
     Active Substance: ACETAMINOPHEN
  4. DIPHENHYDRAMINE [Concomitant]
     Active Substance: DIPHENHYDRAMINE
  5. LIDOCAINE [Concomitant]
     Active Substance: LIDOCAINE
  6. PRILOCAINE [Concomitant]
     Active Substance: PRILOCAINE
  7. EPINEPHRINE [Concomitant]
     Active Substance: EPINEPHRINE
  8. OPTIVE SENSITIVE [Concomitant]
  9. PATANASE [Concomitant]
     Active Substance: OLOPATADINE HYDROCHLORIDE
  10. NASONEX [Concomitant]
     Active Substance: MOMETASONE FUROATE
  11. ACETAMINOPHEN AND CODEINE [Concomitant]
     Active Substance: ACETAMINOPHEN\CODEINE PHOSPHATE
  12. LEVEMIR [Concomitant]
     Active Substance: INSULIN DETEMIR
  13. VICTOZA [Concomitant]
     Active Substance: LIRAGLUTIDE
  14. NOVOLOG [Concomitant]
     Active Substance: INSULIN ASPART
  15. TAMOXIFEN [Concomitant]
     Active Substance: TAMOXIFEN
  16. DILTIAZEM [Concomitant]
     Active Substance: DILTIAZEM
  17. FIBER LAX [Concomitant]
     Active Substance: CALCIUM POLYCARBOPHIL
  18. SPIRONOLACTONE [Concomitant]
     Active Substance: SPIRONOLACTONE
  19. IPRATROPIUM BROMIDE [Concomitant]
     Active Substance: IPRATROPIUM BROMIDE
  20. MELATONIN [Concomitant]
     Active Substance: MELATONIN
  21. ALVESCO [Concomitant]
     Active Substance: CICLESONIDE
  22. RESTASIS [Concomitant]
     Active Substance: CYCLOSPORINE
  23. SALINE [Concomitant]
     Active Substance: SODIUM CHLORIDE
  24. ZYRTEC [Concomitant]
     Active Substance: CETIRIZINE HYDROCHLORIDE
  25. VITAMINS [Concomitant]
     Active Substance: VITAMINS
  26. VITAMIN D3 [Concomitant]
     Active Substance: CHOLECALCIFEROL
  27. BIOTIN [Concomitant]
     Active Substance: BIOTIN
  28. MUCINEX [Concomitant]
     Active Substance: GUAIFENESIN
  29. LOVAZA [Concomitant]
     Active Substance: OMEGA-3-ACID ETHYL ESTERS
  30. NASALCROM A [Concomitant]
  31. BENAZEPRIL AND HYDROCHLOROTHIAZIDE [Concomitant]
     Active Substance: BENAZEPRIL HYDROCHLORIDE\HYDROCHLOROTHIAZIDE
  32. KETOCONAZOLE [Concomitant]
     Active Substance: KETOCONAZOLE
  33. SINGULAIR [Concomitant]
     Active Substance: MONTELUKAST SODIUM
  34. MAGNESIUM OXIDE [Concomitant]
     Active Substance: MAGNESIUM OXIDE
  35. BENADRYL [Concomitant]
     Active Substance: DIPHENHYDRAMINE HYDROCHLORIDE
  36. XOPENEX [Concomitant]
     Active Substance: LEVALBUTEROL HYDROCHLORIDE
  37. VITAMIN B COMPLEX [Concomitant]
     Active Substance: CYANOCOBALAMIN\DEXPANTHENOL\NIACINAMIDE\PYRIDOXINE HYDROCHLORIDE\RIBOFLAVIN 5^-PHOSPHATE SODIUM\THIA

REACTIONS (12)
  - Breast cancer [Unknown]
  - Hypoacusis [Unknown]
  - Dyspnoea [Unknown]
  - Blood glucose decreased [Unknown]
  - Nervousness [Unknown]
  - Pruritus [Unknown]
  - Rash [Unknown]
  - Pyrexia [Unknown]
  - Multiple allergies [Unknown]
  - Liver disorder [Unknown]
  - Incorrect dose administered [Unknown]
  - Device leakage [Unknown]
